FAERS Safety Report 16918379 (Version 1)
Quarter: 2019Q4

REPORT INFORMATION
  Report Type: Spontaneous
  Country: BE (occurrence: BE)
  Receive Date: 20191015
  Receipt Date: 20191015
  Transmission Date: 20200122
  Serious: Yes (Other)
  Sender: FDA-Public Use
  Company Number: BE-PFIZER INC-2019394617

PATIENT
  Age: 73 Year
  Sex: Male

DRUGS (1)
  1. MYLOTARG [Suspect]
     Active Substance: GEMTUZUMAB OZOGAMICIN
     Indication: ACUTE MYELOID LEUKAEMIA
     Dosage: CONSOLIDATION

REACTIONS (4)
  - Venoocclusive disease [Recovered/Resolved]
  - Atrial fibrillation [Unknown]
  - Thrombocytopenia [Not Recovered/Not Resolved]
  - Sepsis [Unknown]
